FAERS Safety Report 20944689 (Version 1)
Quarter: 2022Q2

REPORT INFORMATION
  Report Type: Spontaneous
  Country: GB (occurrence: GB)
  Receive Date: 20220610
  Receipt Date: 20220610
  Transmission Date: 20220720
  Serious: Yes (Disabling, Other)
  Sender: FDA-Public Use
  Company Number: GB-MHRA-MED-202205262158120820-XXAEX

PATIENT
  Age: 34 Year
  Sex: Male

DRUGS (6)
  1. BUPRENORPHINE HYDROCHLORIDE [Suspect]
     Active Substance: BUPRENORPHINE HYDROCHLORIDE
     Indication: Pain
     Route: 048
     Dates: start: 202205
  2. CLONAZEPAM [Concomitant]
     Active Substance: CLONAZEPAM
     Indication: Anxiety disorder
     Dates: start: 2019
  3. LAMOTRIGINE [Concomitant]
     Active Substance: LAMOTRIGINE
  4. OLANZAPINE [Concomitant]
     Active Substance: OLANZAPINE
     Indication: Bipolar disorder
     Dates: start: 2019
  5. PREGABALIN [Concomitant]
     Active Substance: PREGABALIN
     Indication: Bipolar disorder
     Dates: start: 2019
  6. ZOPICLONE [Concomitant]
     Active Substance: ZOPICLONE

REACTIONS (5)
  - Hallucination [Not Recovered/Not Resolved]
  - Balance disorder [Not Recovered/Not Resolved]
  - Joint instability [Unknown]
  - Fall [Unknown]
  - Amnesia [Unknown]

NARRATIVE: CASE EVENT DATE: 20220523
